FAERS Safety Report 11995724 (Version 2)
Quarter: 2016Q1

REPORT INFORMATION
  Report Type: Spontaneous
  Country: US (occurrence: US)
  Receive Date: 20160203
  Receipt Date: 20160210
  Transmission Date: 20160526
  Serious: No
  Sender: FDA-Public Use
  Company Number: US-PFIZER INC-2016063958

PATIENT
  Age: 67 Year
  Sex: Male
  Weight: 74.39 kg

DRUGS (3)
  1. VICODIN [Concomitant]
     Active Substance: ACETAMINOPHEN\HYDROCODONE BITARTRATE
     Indication: BACK PAIN
     Dosage: 7.5 MG(ES 7.5MG TABLET, ONCE OR TWICE PER DAY AS NEEDED)
     Route: 048
  2. VIAGRA [Suspect]
     Active Substance: SILDENAFIL CITRATE
     Indication: ERECTILE DYSFUNCTION
     Dosage: 100 MG, (100MG TABLET ONCE BY MOUTH)
     Route: 048
     Dates: start: 20160116
  3. CARISOPRODOL. [Concomitant]
     Active Substance: CARISOPRODOL
     Indication: FIBROMYALGIA
     Dosage: 350 MG, DAILY
     Route: 048

REACTIONS (2)
  - Drug interaction [Unknown]
  - Drug ineffective [Unknown]

NARRATIVE: CASE EVENT DATE: 20160116
